FAERS Safety Report 6713813-8 (Version None)
Quarter: 2010Q2

REPORT INFORMATION
  Report Type: 
  Country: None (occurrence: None)
  Receive Date: 20100506
  Receipt Date: 20100426
  Transmission Date: 20101027
  Serious: Yes (Death)
  Sender: FDA-Public Use
  Company Number: MX-PFIZER INC-2010053220

PATIENT
  Age: 76 Year
  Sex: Male
  Weight: 65 kg

DRUGS (3)
  1. BLINDED *NO SUBJECT DRUG [Suspect]
     Indication: CARDIAC FAILURE CONGESTIVE
     Dosage: UNK MG, 1X/DAY
     Route: 048
     Dates: start: 20090605, end: 20100401
  2. BLINDED *PLACEBO [Suspect]
     Indication: CARDIAC FAILURE CONGESTIVE
     Dosage: UNK MG, 1X/DAY
     Route: 048
     Dates: start: 20090605, end: 20100401
  3. BLINDED EPLERENONE [Suspect]
     Indication: CARDIAC FAILURE CONGESTIVE
     Dosage: UNK MG, 1X/DAY
     Route: 048
     Dates: start: 20090605, end: 20100401

REACTIONS (1)
  - DEATH [None]
